FAERS Safety Report 8231077-3 (Version None)
Quarter: 2012Q1

REPORT INFORMATION
  Report Type: 
  Country: None (occurrence: None)
  Receive Date: 20120323
  Receipt Date: 20120315
  Transmission Date: 20120608
  Serious: Yes (Hospitalization, Other)
  Sender: FDA-Public Use
  Company Number: US-BAYER-2011-112044

PATIENT
  Age: 42 Year
  Sex: Female
  Weight: 85.714 kg

DRUGS (3)
  1. PRISTIQ [Concomitant]
     Dosage: 50 MG, UNK
     Route: 048
     Dates: start: 20080729, end: 20110113
  2. YAZ [Suspect]
     Indication: ACNE
     Dosage: UNK
     Route: 048
     Dates: start: 20070801, end: 20080501
  3. DROSPIRENONE AND ETHINYL ESTRADIOL [Suspect]
     Indication: ACNE
     Dosage: UNK
     Route: 048
     Dates: start: 20080801, end: 20090801

REACTIONS (4)
  - PAIN [None]
  - DEEP VEIN THROMBOSIS [None]
  - INJURY [None]
  - PHLEBITIS SUPERFICIAL [None]
